FAERS Safety Report 8309472-3 (Version None)
Quarter: 2012Q2

REPORT INFORMATION
  Report Type: 
  Country: None (occurrence: None)
  Receive Date: 20120425
  Receipt Date: 20120420
  Transmission Date: 20120825
  Serious: No
  Sender: FDA-Public Use
  Company Number: US-PFIZER INC-2012098587

PATIENT
  Sex: Female
  Weight: 86.168 kg

DRUGS (2)
  1. ADVIL MIGRAINE LIQUI-GELS [Suspect]
     Indication: MIGRAINE
     Dosage: 200 MG, DAILY
     Dates: start: 20120401, end: 20120401
  2. IBUPROFEN (ADVIL) [Concomitant]
     Indication: HEADACHE
     Dosage: 200 MG, AS NEEDED

REACTIONS (1)
  - DRUG INEFFECTIVE [None]
